FAERS Safety Report 5127190-X (Version None)
Quarter: 2006Q4

REPORT INFORMATION
  Report Type: 
  Country: None (occurrence: None)
  Receive Date: 20061013
  Receipt Date: 20060929
  Transmission Date: 20070319
  Serious: Yes (Other)
  Sender: FDA-Public Use
  Company Number: BR-JNJFOC-20061002473

PATIENT
  Sex: Female

DRUGS (1)
  1. MICRONOR [Suspect]
     Indication: CONTRACEPTION

REACTIONS (4)
  - DRUG EXPOSURE DURING PREGNANCY [None]
  - ECTOPIC PREGNANCY [None]
  - MEDICATION ERROR [None]
  - SALPINGITIS [None]
